FAERS Safety Report 7518170-5 (Version None)
Quarter: 2011Q2

REPORT INFORMATION
  Report Type: 
  Country: None (occurrence: None)
  Receive Date: 20110523
  Receipt Date: 20110511
  Transmission Date: 20111010
  Serious: Yes (Other)
  Sender: FDA-Public Use
  Company Number: 2011US0123

PATIENT
  Age: 14 Year
  Sex: Female
  Weight: 44 kg

DRUGS (10)
  1. METHYLPREDNISOLONE [Concomitant]
  2. ALTEPLASE (ALTEPLASE) [Concomitant]
  3. ONDANSETRON [Concomitant]
  4. RANITIDINE [Concomitant]
  5. SODIUM POLYSTYRENE SULFONATE (SODIUM POLYSTYRENE SULFATE) [Concomitant]
  6. KINERET [Suspect]
     Indication: JUVENILE ARTHRITIS
     Dosage: 100 MG 1 IN 1 D, SUBCUTANEOUS
     Route: 058
     Dates: start: 20110422, end: 20110428
  7. ACETAMINOPHEN [Concomitant]
  8. ALBUMIN (HUMAN) [Concomitant]
  9. PANTOPRAZOLE [Concomitant]
  10. RASBURICASE (RASBURICASE) [Concomitant]

REACTIONS (5)
  - HISTIOCYTOSIS HAEMATOPHAGIC [None]
  - DYSPNOEA [None]
  - CARDIOMEGALY [None]
  - RETINAL INFARCTION [None]
  - FLUID OVERLOAD [None]
